FAERS Safety Report 4868685-3 (Version None)
Quarter: 2005Q4

REPORT INFORMATION
  Report Type: 
  Country: None (occurrence: None)
  Receive Date: 20051223
  Receipt Date: 20051117
  Transmission Date: 20060501
  Serious: Yes (Hospitalization)
  Sender: FDA-Public Use
  Company Number: 2005160498

PATIENT
  Age: 73 Year
  Sex: Male
  Weight: 69.8539 kg

DRUGS (4)
  1. CELECOXIB (CELECOXIB) [Suspect]
     Indication: LUNG SQUAMOUS CELL CARCINOMA STAGE UNSPECIFIED
     Dosage: 800 MG (400 MG, 2 IN 1 D), ORAL
     Route: 048
  2. CARBOPLATIN [Suspect]
     Indication: LUNG SQUAMOUS CELL CARCINOMA STAGE UNSPECIFIED
     Dosage: INTRAVENOUS
     Route: 042
  3. TAXOL [Suspect]
     Indication: LUNG SQUAMOUS CELL CARCINOMA STAGE UNSPECIFIED
     Dosage: 200 MG/M2, INTRAVENOUS
     Route: 042
  4. ALL OTHER THERAPEUTIC PRODUCTS (ALL OTHER THERAPEUTIC PRODUCTS) [Concomitant]

REACTIONS (4)
  - ANAEMIA [None]
  - DYSPNOEA [None]
  - NEUTROPENIA [None]
  - PYREXIA [None]
